FAERS Safety Report 8188200-9 (Version None)
Quarter: 2012Q1

REPORT INFORMATION
  Report Type: 
  Country: None (occurrence: None)
  Receive Date: 20120306
  Receipt Date: 20120305
  Transmission Date: 20120608
  Serious: Yes (Other)
  Sender: FDA-Public Use
  Company Number: US-PFIZER INC-2012058800

PATIENT
  Sex: Female
  Weight: 65.306 kg

DRUGS (7)
  1. RESTORIL [Concomitant]
     Indication: INSOMNIA
     Dosage: 15 MG, 1X/DAY AT NIGHT
  2. LIPITOR [Suspect]
     Indication: BLOOD CHOLESTEROL INCREASED
     Dosage: 40MG DAILY AT NIGHT
     Dates: start: 20060101
  3. IBUPROFEN [Concomitant]
     Indication: ARTHRITIS
     Dosage: 800 MG, AS NEEDED
  4. SYNTHROID [Concomitant]
     Indication: THYROID DISORDER
     Dosage: 50 MG DAILY
  5. NEURONTIN [Suspect]
     Indication: BURNING SENSATION
  6. NEURONTIN [Suspect]
     Indication: NEURALGIA
     Dosage: UNK 1X/DAY AT BEDTIME
  7. ENALAPRIL MALEATE [Suspect]
     Indication: HYPERTENSION
     Dosage: 20 MG, 2X/DAY
     Dates: start: 20080101, end: 20120216

REACTIONS (2)
  - DRUG INEFFECTIVE [None]
  - CATARACT [None]
